FAERS Safety Report 8217021-3 (Version None)
Quarter: 2012Q1

REPORT INFORMATION
  Report Type: 
  Country: None (occurrence: None)
  Receive Date: 20120319
  Receipt Date: 20060224
  Transmission Date: 20120608
  Serious: No
  Sender: FDA-Public Use
  Company Number: US-BIOGENIDEC-2006BI003387

PATIENT
  Sex: Female
  Weight: 117 kg

DRUGS (2)
  1. AVONEX [Suspect]
     Route: 030
     Dates: start: 20030101, end: 20040101
  2. AVONEX [Suspect]
     Indication: MULTIPLE SCLEROSIS
     Route: 030
     Dates: start: 19990101, end: 20000101

REACTIONS (3)
  - MALAISE [None]
  - DRUG INTOLERANCE [None]
  - INFLUENZA LIKE ILLNESS [None]
